FAERS Safety Report 7156993-5 (Version None)
Quarter: 2010Q4

REPORT INFORMATION
  Report Type: 
  Country: None (occurrence: None)
  Receive Date: 20101214
  Receipt Date: 20100114
  Transmission Date: 20110411
  Serious: No
  Sender: FDA-Public Use
  Company Number: US-ASTRAZENECA-2010SE01762

PATIENT
  Sex: Female

DRUGS (6)
  1. CRESTOR [Suspect]
     Route: 048
     Dates: start: 20100111
  2. SAVELLA [Concomitant]
  3. CELEBREX [Concomitant]
  4. NUVIGIL [Concomitant]
  5. ULTRAM [Concomitant]
  6. AMRIX [Concomitant]

REACTIONS (2)
  - ASTHENIA [None]
  - HYPERSOMNIA [None]
